FAERS Safety Report 10429347 (Version 1)
Quarter: 2014Q3

REPORT INFORMATION
  Report Type: Spontaneous
  Country: US (occurrence: None)
  Receive Date: 20140725
  Receipt Date: 20140725
  Transmission Date: 20150326
  Serious: Yes (Hospitalization)
  Sender: FDA-Public Use
  Company Number: 163-50794-13105980

PATIENT
  Age: 67 Year
  Sex: Male

DRUGS (21)
  1. GABAPENTIN (GABAPENTIN) [Concomitant]
     Active Substance: GABAPENTIN
  2. OMEGA-3 FATTY ACIDS - VITAMIN E (OMEGA-3 FATTY ACIDS W/TOCOPHEROL) [Concomitant]
  3. BLOOD (BLOOD AND RELATED PRODUCTS) [Concomitant]
     Active Substance: WHOLE BLOOD
  4. POTASSIUM CHLORIDE SR (POTASSIUM CHLORIDE) [Concomitant]
  5. CALCIUM CARBONATE/VITAMIN D3 (LEKOVIT CA) [Concomitant]
  6. VITAMIN A (RETINOL) [Concomitant]
  7. TAMSULOSIN (TAMSULOSIN) [Concomitant]
     Active Substance: TAMSULOSIN
  8. HYDROCODONE-ACETAMINOPHEN (REMEDEINE) [Concomitant]
  9. PV W-O CA/FERROUS FUMARATE/FA (PREGAMAL) [Concomitant]
  10. METOPROLOL TARTRATE (METOPROLOL TARTRATE) [Concomitant]
  11. DILTIAZEM CD 24HR (DILTIAZEM HYDROCHLORIDE) [Concomitant]
  12. DIGOXIN (DIGOXIN) [Concomitant]
     Active Substance: DIGOXIN
  13. M-VIT (MULTIVITAMINS) [Concomitant]
  14. PLATELETS (PLATELETS) [Concomitant]
     Active Substance: HUMAN PLATELET, ALLOGENIC
  15. VIDAZA [Suspect]
     Active Substance: AZACITIDINE
     Indication: MYELODYSPLASTIC SYNDROME
     Dates: start: 20130916
  16. NYSTOP (NYSTATIN) [Concomitant]
  17. POLYETHYLENE GLUCOL (MACROGOL) [Concomitant]
  18. ASCORBIC ACID (ASCORBIC ACID) [Concomitant]
  19. CYANOCOBALAMIN (CYANOCOBALAMIN) [Concomitant]
  20. FUROSEMIDE (FUROSEMIDE) [Concomitant]
     Active Substance: FUROSEMIDE
  21. SENNOSIDES (SENNOSIDE A+B) [Concomitant]

REACTIONS (2)
  - Atrial fibrillation [None]
  - Febrile neutropenia [None]

NARRATIVE: CASE EVENT DATE: 20130930
